FAERS Safety Report 25976926 (Version 2)
Quarter: 2025Q4

REPORT INFORMATION
  Report Type: Spontaneous
  Country: US (occurrence: US)
  Receive Date: 20251030
  Receipt Date: 20251103
  Transmission Date: 20260117
  Serious: Yes (Other)
  Sender: ABBVIE
  Company Number: US-ABBVIE-6521555

PATIENT
  Age: 38 Year
  Sex: Female

DRUGS (1)
  1. LILETTA [Suspect]
     Active Substance: LEVONORGESTREL
     Indication: Product used for unknown indication
     Dosage: TIME INTERVAL: AS NECESSARY
     Route: 015
     Dates: start: 202106

REACTIONS (4)
  - Uterine perforation [Unknown]
  - Device dislocation [Unknown]
  - Uterine haemorrhage [Unknown]
  - Uterine spasm [Unknown]

NARRATIVE: CASE EVENT DATE: 20251022
